FAERS Safety Report 4544499-9 (Version None)
Quarter: 2004Q4

REPORT INFORMATION
  Report Type: 
  Country: None (occurrence: None)
  Receive Date: 20041230
  Receipt Date: 20041217
  Transmission Date: 20050328
  Serious: Yes (Other)
  Sender: FDA-Public Use
  Company Number: PHEH2004US12923

PATIENT

DRUGS (1)
  1. VISUDYNE [Suspect]
     Dates: start: 20020101, end: 20020101

REACTIONS (2)
  - EXTRAVASATION [None]
  - NECROSIS [None]
